FAERS Safety Report 6519353-3 (Version None)
Quarter: 2009Q4

REPORT INFORMATION
  Report Type: 
  Country: None (occurrence: None)
  Receive Date: 20091228
  Receipt Date: 20091215
  Transmission Date: 20100525
  Serious: Yes (Other)
  Sender: FDA-Public Use
  Company Number: US-BAYER-200917603BCC

PATIENT
  Age: 45 Year
  Sex: Female
  Weight: 66 kg

DRUGS (2)
  1. ALKA SELTZER PLUS EFFERVESCENT SPARKLING ORIGINAL COLD [Suspect]
     Indication: RHINORRHOEA
     Dosage: TOTAL DAILY DOSE: 1 DF  UNIT DOSE: 1 DF
     Route: 048
     Dates: start: 20090601, end: 20090601
  2. ALKA SELTZER PLUS EFFERVESCENT SPARKLING ORIGINAL COLD [Suspect]
     Dosage: TOTAL DAILY DOSE: 1 DF  UNIT DOSE: 1 DF
     Route: 048
     Dates: start: 20091201, end: 20091202

REACTIONS (4)
  - EYE SWELLING [None]
  - HYPERSENSITIVITY [None]
  - SNEEZING [None]
  - THROAT TIGHTNESS [None]
